FAERS Safety Report 10061613 (Version 1)
Quarter: 2014Q2

REPORT INFORMATION
  Report Type: Spontaneous
  Country: US (occurrence: None)
  Receive Date: 20140404
  Receipt Date: 20140404
  Transmission Date: 20141212
  Serious: Yes (Other)
  Sender: FDA-Public Use
  Company Number: None

PATIENT
  Age: 42 Year
  Sex: Female
  Weight: 102.06 kg

DRUGS (1)
  1. OFLOXACIN [Suspect]
     Indication: EYE INFECTION
     Dosage: ONE DROP ?FOUR TIMES DAILY ?INTO THE EYE
     Dates: start: 20140328, end: 20140401

REACTIONS (1)
  - Drug ineffective [None]
